FAERS Safety Report 7315977-4 (Version None)
Quarter: 2011Q1

REPORT INFORMATION
  Report Type: 
  Country: None (occurrence: None)
  Receive Date: 20110225
  Receipt Date: 20110214
  Transmission Date: 20110831
  Serious: Yes (Hospitalization, Other)
  Sender: FDA-Public Use
  Company Number: PHHY2010MX45265

PATIENT
  Sex: Female

DRUGS (5)
  1. CO-DIOVAN [Suspect]
     Dosage: 1 TABLET (160/12.5 MG) DAILY
     Route: 048
     Dates: start: 20091103
  2. ASPIRIN [Concomitant]
  3. CO-DIOVAN [Suspect]
     Dosage: 1 TABLET (320/12.5MG) DAILY
     Route: 048
     Dates: start: 20100301
  4. CO-DIOVAN [Suspect]
     Indication: HYPERTENSION
     Dosage: 1 TABLET (160/12.5 MG) DAILY
     Route: 048
     Dates: start: 20080514, end: 20090801
  5. STUGERON [Concomitant]
     Dosage: 150 MG, DAILY

REACTIONS (8)
  - CARDIAC DISORDER [None]
  - BLOOD PRESSURE INCREASED [None]
  - BLOOD PRESSURE INADEQUATELY CONTROLLED [None]
  - TACHYCARDIA [None]
  - THYROID DISORDER [None]
  - MYOCARDIAL INFARCTION [None]
  - EPISTAXIS [None]
  - DIZZINESS [None]
